FAERS Safety Report 23888589 (Version 4)
Quarter: 2025Q3

REPORT INFORMATION
  Report Type: Spontaneous
  Country: GB (occurrence: GB)
  Receive Date: 20240523
  Receipt Date: 20250807
  Transmission Date: 20251021
  Serious: Yes (Hospitalization, Other)
  Sender: NOVARTIS
  Company Number: GB-002147023-NVSC2024GB108313

PATIENT
  Sex: Female

DRUGS (3)
  1. EXJADE [Suspect]
     Active Substance: DEFERASIROX
     Indication: Myelofibrosis
     Dosage: 360 MG, BID
     Route: 048
  2. RUXOLITINIB [Suspect]
     Active Substance: RUXOLITINIB
     Indication: Myelofibrosis
     Route: 048
     Dates: start: 20210201, end: 20240501
  3. WARFARIN [Concomitant]
     Active Substance: WARFARIN
     Indication: Aortic valve replacement
     Route: 048
     Dates: start: 202102

REACTIONS (6)
  - Anaemia [Recovered/Resolved]
  - Dyspnoea [Unknown]
  - Gastrointestinal haemorrhage [Recovered/Resolved]
  - Haemoglobin decreased [Recovered/Resolved]
  - Melaena [Unknown]
  - Haematochezia [Unknown]

NARRATIVE: CASE EVENT DATE: 20240417
